FAERS Safety Report 11026223 (Version 1)
Quarter: 2015Q2

REPORT INFORMATION
  Report Type: Spontaneous
  Country: PK (occurrence: PK)
  Receive Date: 20150414
  Receipt Date: 20150414
  Transmission Date: 20150821
  Serious: Yes (Hospitalization, Other)
  Sender: FDA-Public Use
  Company Number: PK-GILEAD-2015-0147211

PATIENT
  Age: 42 Year
  Sex: Male
  Weight: 61 kg

DRUGS (7)
  1. SILLIVER [Concomitant]
     Indication: LIVER DISORDER
     Dosage: 400 MG, QD
     Route: 048
     Dates: start: 20140603, end: 20140911
  2. EVION                              /00110502/ [Concomitant]
     Dosage: 400 MG, QD
     Route: 048
     Dates: start: 20140603
  3. XOLOX                              /00816701/ [Suspect]
     Active Substance: RIBAVIRIN
     Indication: HEPATITIS C
     Dosage: 800 MG, QD
     Route: 048
     Dates: start: 20140910, end: 20150226
  4. EVOPRIDE PLUS [Concomitant]
     Indication: DIABETES MELLITUS
     Dosage: UNK, BID
     Route: 048
     Dates: start: 20141209
  5. ZESTRIL [Concomitant]
     Active Substance: LISINOPRIL
     Dosage: 5 MG, QD
     Route: 048
     Dates: start: 20141013
  6. SOVALDI [Suspect]
     Active Substance: SOFOSBUVIR
     Indication: HEPATITIS C
     Dosage: 400 MG, QD
     Route: 048
     Dates: start: 20140910, end: 20150226
  7. INOSITA PLUS [Concomitant]
     Indication: DIABETES MELLITUS
     Dosage: 100 MG, QD
     Route: 048
     Dates: start: 20141013

REACTIONS (3)
  - Loss of consciousness [Unknown]
  - Jaundice [Unknown]
  - Asterixis [Unknown]

NARRATIVE: CASE EVENT DATE: 20150202
